FAERS Safety Report 25522898 (Version 1)
Quarter: 2025Q3

REPORT INFORMATION
  Report Type: Spontaneous
  Country: EU (occurrence: EU)
  Receive Date: 20250707
  Receipt Date: 20250707
  Transmission Date: 20251021
  Serious: Yes (Other)
  Sender: TAKEDA
  Company Number: EU-TAKEDA-2025TUS055983

PATIENT
  Age: 3 Year
  Sex: Male
  Weight: 16 kg

DRUGS (16)
  1. HUMAN IMMUNOGLOBULIN G [Suspect]
     Active Substance: HUMAN IMMUNOGLOBULIN G
     Indication: Kawasaki^s disease
     Dosage: UNK UNK, QD
  2. HUMAN IMMUNOGLOBULIN G [Suspect]
     Active Substance: HUMAN IMMUNOGLOBULIN G
     Dosage: 2000 MILLIGRAM/KILOGRAM, QD
  3. ASPIRIN [Concomitant]
     Active Substance: ASPIRIN
     Indication: Antiinflammatory therapy
     Dosage: 30 MILLIGRAM/KILOGRAM, QD
  4. ASPIRIN [Concomitant]
     Active Substance: ASPIRIN
     Indication: Antiplatelet therapy
     Dosage: 50 MILLIGRAM, QD
  5. ASPIRIN [Concomitant]
     Active Substance: ASPIRIN
     Indication: Kawasaki^s disease
  6. METHYLPREDNISOLONE [Concomitant]
     Active Substance: METHYLPREDNISOLONE
     Indication: Adjuvant therapy
     Dosage: 0.8 MILLIGRAM/KILOGRAM, BID
  7. METHYLPREDNISOLONE [Concomitant]
     Active Substance: METHYLPREDNISOLONE
     Indication: Kawasaki^s disease
  8. CEFTRIAXONE [Concomitant]
     Active Substance: CEFTRIAXONE
  9. PREDNISONE [Concomitant]
     Active Substance: PREDNISONE
  10. LANSOPRAZOLE [Concomitant]
     Active Substance: LANSOPRAZOLE
  11. HEPARIN [Concomitant]
     Active Substance: HEPARIN SODIUM
     Indication: Coronary artery thrombosis
  12. WARFARIN [Concomitant]
     Active Substance: WARFARIN
     Indication: Coronary artery thrombosis
  13. CLOPIDOGREL [Concomitant]
     Active Substance: CLOPIDOGREL BISULFATE
     Indication: Antiplatelet therapy
     Dosage: 3 MILLIGRAM, QD
  14. CLOPIDOGREL [Concomitant]
     Active Substance: CLOPIDOGREL BISULFATE
     Indication: Coronary artery thrombosis
     Dosage: 6 MILLIGRAM, QD
  15. ANAKINRA [Concomitant]
     Active Substance: ANAKINRA
     Dosage: 2 MILLIGRAM/KILOGRAM, QD
  16. ANAKINRA [Concomitant]
     Active Substance: ANAKINRA
     Dosage: 4 MILLIGRAM/KILOGRAM, QD

REACTIONS (1)
  - Coronary artery aneurysm [Recovered/Resolved]
